FAERS Safety Report 23220143 (Version 1)
Quarter: 2023Q4

REPORT INFORMATION
  Report Type: Spontaneous
  Country: CN (occurrence: CN)
  Receive Date: 20231123
  Receipt Date: 20231123
  Transmission Date: 20240110
  Serious: Yes (Hospitalization)
  Sender: FDA-Public Use
  Company Number: CN-SA-SAC20231120001325

PATIENT
  Age: 49 Year
  Sex: Female
  Weight: 69.5 kg

DRUGS (7)
  1. TAXOTERE [Suspect]
     Active Substance: DOCETAXEL
     Indication: Neoplasm
     Dosage: 70 MG, QD
     Route: 041
     Dates: start: 20231111, end: 20231111
  2. OXALIPLATIN [Suspect]
     Active Substance: OXALIPLATIN
     Indication: Neoplasm
     Dosage: 120 MG, QD
     Route: 041
     Dates: start: 20231111, end: 20231111
  3. SODIUM CHLORIDE [Suspect]
     Active Substance: SODIUM CHLORIDE
     Indication: Medication dilution
     Dosage: 250 ML, QD
     Route: 041
     Dates: start: 20231111, end: 20231111
  4. SODIUM CHLORIDE [Suspect]
     Active Substance: SODIUM CHLORIDE
     Dosage: 130 ML, QD
     Route: 041
     Dates: start: 20231111, end: 20231112
  5. FLUOROURACIL [Suspect]
     Active Substance: FLUOROURACIL
     Indication: Neoplasm
     Dosage: 4.5 G, QD
     Route: 041
     Dates: start: 20231111, end: 20231112
  6. DEXTROSE [Suspect]
     Active Substance: DEXTROSE\DEXTROSE MONOHYDRATE
     Indication: Neoplasm
     Dosage: 250 ML, QD
     Route: 041
     Dates: start: 20231111, end: 20231111
  7. LEUCOVORIN CALCIUM [Concomitant]
     Active Substance: LEUCOVORIN CALCIUM
     Indication: Gastric cancer stage IV
     Dosage: 350 MG
     Route: 065

REACTIONS (4)
  - Neutrophil count decreased [Unknown]
  - White blood cell count decreased [Unknown]
  - Alanine aminotransferase increased [Recovering/Resolving]
  - Aspartate aminotransferase increased [Recovering/Resolving]

NARRATIVE: CASE EVENT DATE: 20231113
